FAERS Safety Report 5868559-5 (Version None)
Quarter: 2008Q3

REPORT INFORMATION
  Report Type: 
  Country: None (occurrence: None)
  Receive Date: 20080903
  Receipt Date: 20080828
  Transmission Date: 20090109
  Serious: Yes (Other)
  Sender: FDA-Public Use
  Company Number: HU-ROCHE-583600

PATIENT
  Age: 68 Year
  Sex: Female

DRUGS (8)
  1. BONIVA [Suspect]
     Indication: OSTEOPOROSIS
     Route: 042
     Dates: start: 20080501, end: 20080801
  2. AMLODIPINE [Suspect]
     Indication: DRUG USE FOR UNKNOWN INDICATION
     Dosage: DISCONTINUED.
     Route: 065
  3. MEDROL [Concomitant]
  4. METHOTREXATE [Concomitant]
  5. TARDYFERON-FOL [Concomitant]
  6. BETALOC ZOK [Concomitant]
  7. TRITACE [Concomitant]
  8. STEROID NOS [Concomitant]

REACTIONS (2)
  - OEDEMA PERIPHERAL [None]
  - SWELLING FACE [None]
